FAERS Safety Report 5841773-0 (Version None)
Quarter: 2008Q3

REPORT INFORMATION
  Report Type: 
  Country: None (occurrence: None)
  Receive Date: 20080811
  Receipt Date: 20080811
  Transmission Date: 20090109
  Serious: Yes (Other)
  Sender: FDA-Public Use
  Company Number: None

PATIENT
  Age: 18 Year
  Sex: Female
  Weight: 77.1115 kg

DRUGS (2)
  1. CYMBALTA [Suspect]
     Indication: DEPRESSION
     Dosage: 30 MG ONCE DAILY PO
     Route: 048
     Dates: start: 20070401, end: 20080401
  2. CYMBALTA [Suspect]
     Indication: DEPRESSION
     Dosage: 60 MG ONCE DAILY PO
     Route: 048
     Dates: start: 20080402, end: 20080805

REACTIONS (15)
  - ABDOMINAL PAIN UPPER [None]
  - CRYING [None]
  - DISTURBANCE IN ATTENTION [None]
  - DIZZINESS [None]
  - DRUG WITHDRAWAL SYNDROME [None]
  - EYE PAIN [None]
  - HEADACHE [None]
  - HYPERHIDROSIS [None]
  - INSOMNIA [None]
  - IRRITABILITY [None]
  - NAUSEA [None]
  - NERVOUS SYSTEM DISORDER [None]
  - PAIN [None]
  - TREMOR [None]
  - VENTRICULAR EXTRASYSTOLES [None]
